FAERS Safety Report 6204862-7 (Version None)
Quarter: 2009Q2

REPORT INFORMATION
  Report Type: 
  Country: None (occurrence: None)
  Receive Date: 20090522
  Receipt Date: 20090507
  Transmission Date: 20091009
  Serious: Yes (Other)
  Sender: FDA-Public Use
  Company Number: 2009EN000161

PATIENT
  Age: 35 Year
  Sex: Female

DRUGS (1)
  1. ONCASPAR [Suspect]
     Indication: DRUG USE FOR UNKNOWN INDICATION

REACTIONS (1)
  - BLOOD TRIGLYCERIDES INCREASED [None]
